FAERS Safety Report 4696245-6 (Version None)
Quarter: 2005Q2

REPORT INFORMATION
  Report Type: 
  Country: None (occurrence: None)
  Receive Date: 20050608
  Receipt Date: 20040728
  Transmission Date: 20051028
  Serious: Yes (Other)
  Sender: FDA-Public Use
  Company Number: 376170

PATIENT
  Sex: 0

DRUGS (2)
  1. ACCUTANE [Suspect]
     Dosage: 40 MG 1 PER WEEK
     Dates: end: 20040704
  2. AMNESTEEM [Suspect]
     Dosage: 40 MG 1 PER WEEK
     Dates: end: 20040706

REACTIONS (2)
  - NO ADVERSE EFFECT [None]
  - PREGNANCY [None]
